FAERS Safety Report 6510060-X (Version None)
Quarter: 2009Q4

REPORT INFORMATION
  Report Type: 
  Country: None (occurrence: None)
  Receive Date: 20091222
  Receipt Date: 20090911
  Transmission Date: 20100525
  Serious: No
  Sender: FDA-Public Use
  Company Number: US-BAUSCH-2009BL004702

PATIENT

DRUGS (1)
  1. BESIVANCE [Suspect]
     Indication: CONJUNCTIVITIS BACTERIAL
     Route: 047

REACTIONS (2)
  - CONDITION AGGRAVATED [None]
  - ULCERATIVE KERATITIS [None]
